FAERS Safety Report 12667999 (Version 1)
Quarter: 2016Q3

REPORT INFORMATION
  Report Type: Other
  Country: GR (occurrence: GR)
  Receive Date: 20160819
  Receipt Date: 20160819
  Transmission Date: 20161109
  Serious: Yes (Hospitalization)
  Sender: FDA-Public Use
  Company Number: GR-WARNER CHILCOTT, LLC-1056524

PATIENT
  Age: 46 Year
  Sex: Male

DRUGS (3)
  1. THIOGUANINE [Concomitant]
     Active Substance: THIOGUANINE
  2. ASACOL [Suspect]
     Active Substance: MESALAMINE
     Indication: CROHN^S DISEASE
  3. PREDNISONE. [Concomitant]
     Active Substance: PREDNISONE

REACTIONS (6)
  - Sinus disorder [Unknown]
  - Cough [Unknown]
  - Lymphocytic infiltration [Unknown]
  - Pyrexia [Unknown]
  - Pulmonary mass [Unknown]
  - Lung infiltration [Recovered/Resolved]
